FAERS Safety Report 6106402-X (Version None)
Quarter: 2009Q1

REPORT INFORMATION
  Report Type: 
  Country: None (occurrence: None)
  Receive Date: 20090306
  Receipt Date: 20090304
  Transmission Date: 20090719
  Serious: No
  Sender: FDA-Public Use
  Company Number: US-B.I. PHARMACEUTICALS,INC./RIDGEFIELD-2009-BP-02034BP

PATIENT
  Age: 57 Year
  Sex: Male

DRUGS (8)
  1. FLOMAX [Suspect]
     Indication: PROSTATITIS
     Dosage: .4MG
     Route: 048
     Dates: start: 20070101, end: 20080101
  2. FLOMAX [Suspect]
     Indication: BENIGN PROSTATIC HYPERPLASIA
     Dosage: .8MG
     Route: 048
     Dates: start: 20080101
  3. LEVOXYL [Concomitant]
     Indication: AUTOIMMUNE THYROIDITIS
  4. VALIUM [Concomitant]
     Indication: MYALGIA
  5. LISINOPRIL [Concomitant]
     Dosage: 5MG
  6. PROSTA Q (HERBAL) [Concomitant]
  7. VITAMINS [Concomitant]
  8. ZINC [Concomitant]
     Dosage: 30MG

REACTIONS (3)
  - DRUG INEFFECTIVE [None]
  - DYSGEUSIA [None]
  - PAROSMIA [None]
